FAERS Safety Report 4290523-0 (Version None)
Quarter: 2004Q1

REPORT INFORMATION
  Report Type: 
  Country: None (occurrence: None)
  Receive Date: 20040126
  Receipt Date: 20031110
  Transmission Date: 20041129
  Serious: No
  Sender: FDA-Public Use
  Company Number: USA030948026

PATIENT
  Age: 84 Year
  Sex: Female
  Weight: 52 kg

DRUGS (8)
  1. FORTEO [Suspect]
     Indication: OSTEOPOROSIS
     Dosage: 20 UG/DAY
     Dates: start: 20030909
  2. VITAMIN B COMPLEX CAP [Concomitant]
  3. MICARDIS [Concomitant]
  4. VITAMIN E [Concomitant]
  5. REMINYL [Concomitant]
  6. CALTRATE + D [Concomitant]
  7. VITAMIN C [Concomitant]
  8. GINKO BILOBA [Concomitant]

REACTIONS (6)
  - ARTHRALGIA [None]
  - HEADACHE [None]
  - MYALGIA [None]
  - NASOPHARYNGITIS [None]
  - NERVOUSNESS [None]
  - PAIN IN EXTREMITY [None]
